FAERS Safety Report 8000206-9 (Version None)
Quarter: 2011Q4

REPORT INFORMATION
  Report Type: 
  Country: None (occurrence: None)
  Receive Date: 20111220
  Receipt Date: 20111220
  Transmission Date: 20120403
  Serious: Yes (Other)
  Sender: FDA-Public Use
  Company Number: None

PATIENT
  Sex: Female
  Weight: 107.0489 kg

DRUGS (8)
  1. ALPRAZOLAM [Concomitant]
  2. PAROXETINE [Concomitant]
  3. TRAZODONE HCL [Concomitant]
  4. INVANZ [Suspect]
     Indication: OSTEOMYELITIS
     Dosage: 1GM IV DAILY
     Route: 042
     Dates: start: 20111205
  5. DOCUSATE [Concomitant]
  6. PERCOCET [Concomitant]
  7. FERROUS SULFATE TAB [Concomitant]
  8. NEXIUM [Concomitant]

REACTIONS (3)
  - CONVULSION [None]
  - GLOSSODYNIA [None]
  - FATIGUE [None]
